FAERS Safety Report 12110486 (Version 3)
Quarter: 2018Q3

REPORT INFORMATION
  Report Type: Spontaneous
  Country: US (occurrence: US)
  Receive Date: 20160224
  Receipt Date: 20180712
  Transmission Date: 20181010
  Serious: No
  Sender: FDA-Public Use
  Company Number: US-BAYER-2016-036641

PATIENT
  Age: 49 Year
  Sex: Female
  Weight: 95 kg

DRUGS (3)
  1. ALEVE [Suspect]
     Active Substance: NAPROXEN SODIUM
     Indication: PAIN
     Dosage: 2 TABLETS EVERY 6 HOURS
     Route: 048
     Dates: start: 2016
  2. ALEVE [Suspect]
     Active Substance: NAPROXEN SODIUM
     Indication: PAIN
     Dosage: UNK
  3. SYNTHROID [Concomitant]
     Active Substance: LEVOTHYROXINE SODIUM

REACTIONS (3)
  - Incorrect dosage administered [Unknown]
  - Drug ineffective [None]
  - Drug ineffective [Unknown]

NARRATIVE: CASE EVENT DATE: 2016
